FAERS Safety Report 9526580 (Version 3)
Quarter: 2013Q4

REPORT INFORMATION
  Report Type: Spontaneous
  Country: US (occurrence: US)
  Receive Date: 20130916
  Receipt Date: 20131031
  Transmission Date: 20140711
  Serious: No
  Sender: FDA-Public Use
  Company Number: US-PFIZER INC-2013262776

PATIENT
  Age: 77 Year
  Sex: Male
  Weight: 108 kg

DRUGS (5)
  1. ADVIL [Suspect]
     Indication: PAIN
     Dosage: TWO CAPSULES, EVERY FOUR HOURS
     Route: 048
     Dates: start: 201306
  2. ADVIL [Suspect]
     Indication: BACK PAIN
  3. ADVIL [Suspect]
     Indication: PAIN
     Dosage: TWO TABLETS, EVERY FOUR HOURS
     Route: 048
     Dates: start: 201308
  4. DIOVAN [Concomitant]
     Indication: HYPERTENSION
     Dosage: 130 MG, DAILY
  5. OXYCONTIN [Concomitant]
     Indication: PAIN
     Dosage: UNK, AS NEEDED

REACTIONS (3)
  - Overdose [Unknown]
  - Spinal column stenosis [Unknown]
  - Drug ineffective [Unknown]
